FAERS Safety Report 20039447 (Version 1)
Quarter: 2021Q4

REPORT INFORMATION
  Report Type: Report from Study
  Country: HU (occurrence: HU)
  Receive Date: 20211105
  Receipt Date: 20211105
  Transmission Date: 20220303
  Serious: Yes (Death, Hospitalization)
  Sender: FDA-Public Use
  Company Number: HU-ABBVIE-21K-076-4148369-00

PATIENT
  Sex: Male

DRUGS (5)
  1. CARBIDOPA\LEVODOPA [Suspect]
     Active Substance: CARBIDOPA\LEVODOPA
     Indication: Parkinson^s disease
     Dosage: MORNING DOSE: 7.7 ML; CONTINUOUS DOSE: 4.6 ML/HOUR; EXTRA DOSE: 1.5 ML
     Route: 050
     Dates: start: 201311
  2. CARBIDOPA\LEVODOPA [Suspect]
     Active Substance: CARBIDOPA\LEVODOPA
  3. CARBIDOPA\ENTACAPONE\LEVODOPA [Concomitant]
     Active Substance: CARBIDOPA\ENTACAPONE\LEVODOPA
     Indication: Parkinson^s disease
     Dosage: 150 MG LEVODOPA, 37.5 MG CARBIDOPA, 200 MG ENTACOPE/ TABLET.?1 TABLET IN THE EVENING.
     Route: 048
  4. NOACID [Concomitant]
     Indication: Prophylaxis
     Route: 048
     Dates: start: 201311
  5. ASA PROTECT [Concomitant]
     Indication: Prophylaxis
     Route: 048
     Dates: start: 202008

REACTIONS (3)
  - Death [Fatal]
  - Abnormal faeces [Unknown]
  - Dyspnoea [Unknown]

NARRATIVE: CASE EVENT DATE: 20211027
